FAERS Safety Report 11929582 (Version 2)
Quarter: 2016Q1

REPORT INFORMATION
  Report Type: Spontaneous
  Country: IT (occurrence: IT)
  Receive Date: 20160120
  Receipt Date: 20160125
  Transmission Date: 20160526
  Serious: Yes (Hospitalization)
  Sender: FDA-Public Use
  Company Number: IT-ROCHE-ITM201506IM017972

PATIENT
  Age: 40 Year
  Sex: Female
  Weight: 75 kg

DRUGS (1)
  1. ESBRIET [Suspect]
     Active Substance: PIRFENIDONE
     Indication: IDIOPATHIC PULMONARY FIBROSIS
     Dosage: 267 MG-BLISTER PACK(PVC/PE/PCTFE/AL)252(4X63) CAP
     Route: 048
     Dates: start: 20140701, end: 20150520

REACTIONS (1)
  - Fasciitis [Recovered/Resolved]

NARRATIVE: CASE EVENT DATE: 20150520
